FAERS Safety Report 9747992 (Version 1)
Quarter: 2013Q4

REPORT INFORMATION
  Report Type: Spontaneous
  Country: US (occurrence: US)
  Receive Date: 20131212
  Receipt Date: 20131212
  Transmission Date: 20140711
  Serious: Yes (Other)
  Sender: FDA-Public Use
  Company Number: US-TEVA-388841USA

PATIENT
  Age: 29 Year
  Sex: Female
  Weight: 52.66 kg

DRUGS (5)
  1. PARAGARD 380A [Suspect]
     Indication: CONTRACEPTION
     Route: 015
     Dates: start: 20121004, end: 20130225
  2. WELLBUTRIN [Concomitant]
     Indication: DEPRESSION
  3. BUSPAR [Concomitant]
     Indication: ANXIETY
  4. SEROQUEL [Concomitant]
     Indication: AFFECTIVE DISORDER
  5. SPIRONOLACTONE [Concomitant]
     Indication: ACNE

REACTIONS (3)
  - Device dislocation [Recovered/Resolved]
  - Metrorrhagia [Unknown]
  - Menorrhagia [Unknown]
